FAERS Safety Report 5215053-0 (Version None)
Quarter: 2007Q1

REPORT INFORMATION
  Report Type: 
  Country: None (occurrence: None)
  Receive Date: 20070122
  Receipt Date: 20070112
  Transmission Date: 20070707
  Serious: Yes (Hospitalization)
  Sender: FDA-Public Use
  Company Number: CH-PFIZER INC-2006152040

PATIENT
  Sex: Female
  Weight: 58 kg

DRUGS (12)
  1. ATORVASTATIN CALCIUM [Suspect]
     Indication: MYOCARDIAL INFARCTION
     Route: 048
     Dates: start: 20060920, end: 20061016
  2. ATORVASTATIN CALCIUM [Suspect]
     Route: 048
     Dates: start: 20061017, end: 20061019
  3. ATORVASTATIN CALCIUM [Suspect]
     Dosage: DAILY DOSE:10MG
     Route: 048
  4. AUGMENTIN '125' [Suspect]
     Indication: URINARY TRACT INFECTION
     Route: 048
  5. ANTIBIOTICS [Suspect]
     Dosage: TEXT:1G; 2G
  6. ASPIRIN [Concomitant]
     Route: 048
  7. SPIRICORT [Concomitant]
     Route: 048
  8. NEXIUM [Concomitant]
     Route: 048
  9. TORSEMIDE [Concomitant]
  10. METOZOK - SLOW RELEASE [Concomitant]
     Dates: start: 20060920, end: 20061001
  11. BETASERC [Concomitant]
     Route: 048
  12. NEXIUM [Concomitant]
     Dosage: TEXT:20MG

REACTIONS (28)
  - ALANINE AMINOTRANSFERASE INCREASED [None]
  - ANOREXIA [None]
  - ASPARTATE AMINOTRANSFERASE INCREASED [None]
  - BLOOD ALKALINE PHOSPHATASE INCREASED [None]
  - BLOOD CHOLESTEROL INCREASED [None]
  - DYSURIA [None]
  - ESCHERICHIA URINARY TRACT INFECTION [None]
  - GALLBLADDER DISORDER [None]
  - GALLBLADDER POLYP [None]
  - GAMMA-GLUTAMYLTRANSFERASE INCREASED [None]
  - HAEMANGIOMA [None]
  - HAEMATOCHEZIA [None]
  - HAEMATOCRIT DECREASED [None]
  - HAEMOGLOBIN DECREASED [None]
  - HAEMORRHOIDS [None]
  - HEPATIC CYST [None]
  - HYPERAESTHESIA [None]
  - JAUNDICE [None]
  - LIVER FUNCTION TEST ABNORMAL [None]
  - MALAISE [None]
  - NAUSEA [None]
  - PLATELET COUNT DECREASED [None]
  - RASH [None]
  - URINARY TRACT INFECTION [None]
  - URINARY TRACT INFECTION ENTEROCOCCAL [None]
  - VARICOSE VEIN [None]
  - VEIN DISORDER [None]
  - WEIGHT DECREASED [None]
